FAERS Safety Report 12983111 (Version 1)
Quarter: 2016Q4

REPORT INFORMATION
  Report Type: Spontaneous
  Country: US (occurrence: US)
  Receive Date: 20161129
  Receipt Date: 20161129
  Transmission Date: 20170207
  Serious: No
  Sender: FDA-Public Use
  Company Number: US-MALLINCKRODT-T201603310

PATIENT
  Sex: Female
  Weight: 125 kg

DRUGS (17)
  1. ALBUTEROL. [Concomitant]
     Active Substance: ALBUTEROL
     Dosage: UNK
  2. FENTANYL TRANSDERMAL SYSTEM [Suspect]
     Active Substance: FENTANYL
     Indication: PAIN
     Dosage: 100 MCG, Q48H
     Route: 062
     Dates: start: 2012
  3. FENTANYL MYLAN [Concomitant]
     Active Substance: FENTANYL
     Dosage: 12 ?G/HR
  4. NEURONTIN [Concomitant]
     Active Substance: GABAPENTIN
     Dosage: 800 MG
  5. SPIRIVA [Concomitant]
     Active Substance: TIOTROPIUM BROMIDE MONOHYDRATE
     Dosage: UNK
  6. FENTANYL TRANSDERMAL SYSTEM [Suspect]
     Active Substance: FENTANYL
     Indication: LEUKAEMIA
  7. FLOVENT [Concomitant]
     Active Substance: FLUTICASONE PROPIONATE
     Dosage: UNK
  8. FENTANYL TRANSDERMAL SYSTEM [Suspect]
     Active Substance: FENTANYL
     Indication: COMPLEX REGIONAL PAIN SYNDROME
     Dosage: 100 MCG, Q48H
     Route: 062
     Dates: start: 2012
  9. FENTANYL TRANSDERMAL SYSTEM [Suspect]
     Active Substance: FENTANYL
     Indication: MYELITIS TRANSVERSE
  10. NYSTATIN. [Concomitant]
     Active Substance: NYSTATIN
     Dosage: PRN; SWISH AND SWALLOW
  11. NYSTATIN. [Concomitant]
     Active Substance: NYSTATIN
     Dosage: POWDER
  12. ZANAFLEX [Concomitant]
     Active Substance: TIZANIDINE HYDROCHLORIDE
     Dosage: 4 MG
  13. CYMBALTA [Concomitant]
     Active Substance: DULOXETINE HYDROCHLORIDE
     Dosage: 90 MG
  14. VITAMIN B12 [Concomitant]
     Active Substance: CYANOCOBALAMIN
     Dosage: INJECTION
  15. FENTANYL TRANSDERMAL SYSTEM [Suspect]
     Active Substance: FENTANYL
     Indication: SYSTEMIC LUPUS ERYTHEMATOSUS
  16. TASIGNA [Concomitant]
     Active Substance: NILOTINIB
     Dosage: 150 MG
  17. OXYGEN. [Concomitant]
     Active Substance: OXYGEN
     Dosage: 3L WHILE LAYING DOWN OR SLEEPING

REACTIONS (5)
  - Application site pain [Not Recovered/Not Resolved]
  - Application site inflammation [Not Recovered/Not Resolved]
  - Application site exfoliation [Not Recovered/Not Resolved]
  - Application site erythema [Not Recovered/Not Resolved]
  - Product quality issue [Unknown]

NARRATIVE: CASE EVENT DATE: 2016
